FAERS Safety Report 18356814 (Version 1)
Quarter: 2020Q4

REPORT INFORMATION
  Report Type: Spontaneous
  Country: JP (occurrence: JP)
  Receive Date: 20201007
  Receipt Date: 20201007
  Transmission Date: 20210114
  Serious: Yes (Hospitalization)
  Sender: FDA-Public Use
  Company Number: JP-EISAI MEDICAL RESEARCH-EC-2019-050793

PATIENT
  Age: 16 Year

DRUGS (3)
  1. FYCOMPA [Suspect]
     Active Substance: PERAMPANEL
     Route: 048
     Dates: start: 2018, end: 201807
  2. FYCOMPA [Suspect]
     Active Substance: PERAMPANEL
     Dosage: TAPERED OFF (DOSING DETAILS AND FREQUENCY UNKNOWN)
     Route: 048
     Dates: start: 201807, end: 201807
  3. FYCOMPA [Suspect]
     Active Substance: PERAMPANEL
     Indication: TONIC CONVULSION
     Route: 048
     Dates: start: 20180419, end: 2018

REACTIONS (3)
  - Drug ineffective [Unknown]
  - Dysphagia [Recovered/Resolved]
  - Pneumonia aspiration [Recovered/Resolved]

NARRATIVE: CASE EVENT DATE: 2018
